FAERS Safety Report 6610408-1 (Version None)
Quarter: 2010Q1

REPORT INFORMATION
  Report Type: 
  Country: None (occurrence: None)
  Receive Date: 20100302
  Receipt Date: 20100219
  Transmission Date: 20100710
  Serious: Yes (Hospitalization)
  Sender: FDA-Public Use
  Company Number: US-MILLENNIUM PHARMACEUTICALS, INC.-2010-01330

PATIENT
  Sex: Female

DRUGS (5)
  1. VELCADE [Suspect]
     Indication: MULTIPLE MYELOMA
     Dosage: UNK
     Dates: start: 20090701
  2. CYCLOSPORINE [Suspect]
     Indication: MULTIPLE MYELOMA
  3. FLUDARABINE [Suspect]
     Indication: MULTIPLE MYELOMA
  4. MELPHALAN [Suspect]
     Indication: MULTIPLE MYELOMA
  5. MYCOPHENOLATE MOFETIL [Suspect]
     Indication: MULTIPLE MYELOMA

REACTIONS (3)
  - BRONCHITIS [None]
  - MASTOIDITIS [None]
  - SINUSITIS [None]
